FAERS Safety Report 24456748 (Version 2)
Quarter: 2024Q4

REPORT INFORMATION
  Report Type: Spontaneous
  Country: GR (occurrence: GR)
  Receive Date: 20241017
  Receipt Date: 20241029
  Transmission Date: 20250114
  Serious: Yes (Other)
  Sender: PFIZER
  Company Number: GR-PFIZER INC-202400278054

PATIENT
  Age: 97 Year
  Sex: Male

DRUGS (3)
  1. PAXLOVID [Suspect]
     Active Substance: NIRMATRELVIR\RITONAVIR
     Indication: Antiviral treatment
     Dosage: UNK, 2X/DAY
     Route: 048
     Dates: start: 20241011, end: 20241014
  2. SEROQUEL [Concomitant]
     Active Substance: QUETIAPINE FUMARATE
     Indication: Dementia
     Dosage: UNK, DAILY
  3. SEROQUEL [Concomitant]
     Active Substance: QUETIAPINE FUMARATE
     Indication: Depression

REACTIONS (3)
  - Seizure [Recovered/Resolved]
  - Nervousness [Recovered/Resolved]
  - Restlessness [Recovered/Resolved]

NARRATIVE: CASE EVENT DATE: 20241012
